FAERS Safety Report 7465622-2 (Version None)
Quarter: 2011Q2

REPORT INFORMATION
  Report Type: 
  Country: None (occurrence: None)
  Receive Date: 20110509
  Receipt Date: 20110309
  Transmission Date: 20111010
  Serious: No
  Sender: FDA-Public Use
  Company Number: US-TYCO HEALTHCARE/MALLINCKRODT-T201100133

PATIENT
  Sex: Male
  Weight: 90.703 kg

DRUGS (7)
  1. MAXZIDE [Concomitant]
     Indication: PROSTATIC DISORDER
     Dosage: 7.5 MG, HS
  2. PENNSAID [Suspect]
     Indication: ABDOMINAL PAIN
  3. PENNSAID [Suspect]
     Indication: ARTHRALGIA
     Dosage: 10-15 GTTS, 1-3 TIMES QD
     Dates: start: 20101101, end: 20110124
  4. PENNSAID [Suspect]
     Indication: GROIN PAIN
  5. LOTREL [Concomitant]
     Indication: BLOOD PRESSURE INCREASED
     Dosage: 10 MG, BID
  6. LABETALOL [Concomitant]
     Indication: BLOOD PRESSURE INCREASED
     Dosage: 200 MG, QD
  7. CRESTOR [Concomitant]
     Indication: BLOOD CHOLESTEROL
     Dosage: 10 MG, QD

REACTIONS (2)
  - DRUG INEFFECTIVE FOR UNAPPROVED INDICATION [None]
  - ERYTHEMA [None]
